FAERS Safety Report 15580577 (Version 1)
Quarter: 2018Q4

REPORT INFORMATION
  Report Type: Spontaneous
  Country: US (occurrence: US)
  Receive Date: 20181102
  Receipt Date: 20181102
  Transmission Date: 20190205
  Serious: Yes (Hospitalization)
  Sender: FDA-Public Use
  Company Number: US-PFIZER INC-2018397888

PATIENT
  Age: 59 Year
  Sex: Female

DRUGS (1)
  1. VENLAFAXINE HCL [Suspect]
     Active Substance: VENLAFAXINE HYDROCHLORIDE
     Dosage: UNK

REACTIONS (6)
  - Abdominal pain upper [Unknown]
  - Vomiting [Unknown]
  - Drug intolerance [Unknown]
  - Drug effect incomplete [Unknown]
  - Malaise [Unknown]
  - Headache [Unknown]
